FAERS Safety Report 16030337 (Version 1)
Quarter: 2019Q1

REPORT INFORMATION
  Report Type: Spontaneous
  Country: FR (occurrence: FR)
  Receive Date: 20190304
  Receipt Date: 20190304
  Transmission Date: 20190418
  Serious: Yes (Other)
  Sender: FDA-Public Use
  Company Number: FR-PFIZER INC-2019089109

PATIENT
  Age: 69 Year
  Sex: Female

DRUGS (6)
  1. PIPERACILLIN/TAZOBACTAM [Suspect]
     Active Substance: PIPERACILLIN SODIUM\TAZOBACTAM SODIUM
     Indication: LUNG DISORDER
     Dosage: 12 G, DAILY
     Route: 042
     Dates: start: 20100603, end: 20100615
  2. TOPALGIC [Concomitant]
     Dosage: UNK
     Dates: start: 20100527
  3. ORGARAN [Concomitant]
     Active Substance: DANAPAROID SODIUM
     Dosage: UNK
     Dates: start: 20100527
  4. AUGMENTIN [Suspect]
     Active Substance: AMOXICILLIN\CLAVULANATE POTASSIUM
     Indication: LUNG DISORDER
     Dosage: 3 G, 1X/DAY
     Route: 042
     Dates: start: 20100527, end: 20100603
  5. DAFALGAN [Concomitant]
     Active Substance: ACETAMINOPHEN
     Dosage: UNK
     Dates: start: 20100527
  6. DOXYCYCLINE. [Concomitant]
     Active Substance: DOXYCYCLINE
     Dosage: UNK
     Dates: start: 20100603

REACTIONS (5)
  - Condition aggravated [Recovered/Resolved]
  - Toxic skin eruption [Recovered/Resolved]
  - Rash erythematous [Recovered/Resolved]
  - Pruritus [Recovered/Resolved]
  - Rash [Recovered/Resolved]

NARRATIVE: CASE EVENT DATE: 20100527
